FAERS Safety Report 18907299 (Version 1)
Quarter: 2021Q1

REPORT INFORMATION
  Report Type: Spontaneous
  Country: US (occurrence: US)
  Receive Date: 20210217
  Receipt Date: 20210217
  Transmission Date: 20210420
  Serious: No
  Sender: FDA-Public Use
  Company Number: US-VALIDUS PHARMACEUTICALS LLC-US-2020VAL000678

PATIENT
  Age: 66 Year
  Sex: Female

DRUGS (3)
  1. LASIX [Suspect]
     Active Substance: FUROSEMIDE
     Dosage: 20 MG, IN MORNING AND 40 MG IN EVENING
     Route: 065
     Dates: start: 2020
  2. LASIX [Suspect]
     Active Substance: FUROSEMIDE
     Indication: PRODUCT USED FOR UNKNOWN INDICATION
     Dosage: 20 MG, BID (IN MORNING AD EVENING)
     Route: 065
  3. XELJANZ XR [Suspect]
     Active Substance: TOFACITINIB CITRATE
     Indication: RHEUMATOID ARTHRITIS
     Dosage: UNK, QD (DAILY IN EVENING)
     Route: 065
     Dates: start: 202002

REACTIONS (3)
  - Peripheral swelling [Unknown]
  - Ingrowing nail [Unknown]
  - Fluid retention [Unknown]

NARRATIVE: CASE EVENT DATE: 2020
